FAERS Safety Report 23604776 (Version 1)
Quarter: 2024Q1

REPORT INFORMATION
  Report Type: Spontaneous
  Country: DE (occurrence: DE)
  Receive Date: 20240307
  Receipt Date: 20240307
  Transmission Date: 20240410
  Serious: Yes (Other)
  Sender: FDA-Public Use
  Company Number: None

PATIENT
  Age: 27 Year
  Sex: Female
  Weight: 78 kg

DRUGS (1)
  1. LISDEXAMFETAMINE DIMESYLATE [Suspect]
     Active Substance: LISDEXAMFETAMINE DIMESYLATE
     Indication: Attention deficit hyperactivity disorder
     Dosage: UNK
     Route: 048
     Dates: start: 20211201

REACTIONS (5)
  - Arrhythmia [Unknown]
  - Frequent bowel movements [Recovered/Resolved]
  - Food interaction [Recovered/Resolved]
  - Diarrhoea [Recovered/Resolved]
  - Tachycardia [Unknown]

NARRATIVE: CASE EVENT DATE: 20211201
